FAERS Safety Report 6667746-6 (Version None)
Quarter: 2010Q1

REPORT INFORMATION
  Report Type: 
  Country: None (occurrence: None)
  Receive Date: 20100331
  Receipt Date: 20100322
  Transmission Date: 20100710
  Serious: Yes (Other)
  Sender: FDA-Public Use
  Company Number: CIP10000654

PATIENT

DRUGS (1)
  1. DIDRONEL [Suspect]
     Indication: OSTEOPOROSIS
     Dosage: ORAL
     Route: 048

REACTIONS (4)
  - GASTRODUODENAL ULCER [None]
  - OESOPHAGEAL PERFORATION [None]
  - OESOPHAGEAL ULCER [None]
  - OESOPHAGITIS [None]
